FAERS Safety Report 7917544-8 (Version None)
Quarter: 2011Q4

REPORT INFORMATION
  Report Type: 
  Country: None (occurrence: None)
  Receive Date: 20111114
  Receipt Date: 20111028
  Transmission Date: 20120403
  Serious: Yes (Hospitalization)
  Sender: FDA-Public Use
  Company Number: DSA_48033_2011

PATIENT
  Age: 43 Year
  Sex: Male

DRUGS (5)
  1. VENLAFAXINE [Suspect]
     Indication: DEPRESSION
     Dosage: (DF)
  2. LEVODOPA/CARBIDOPA (NOT SPECIFIED) [Suspect]
     Indication: PARKINSONISM
     Dosage: (LEVODOPA 25MG/CARBIDOPA 100 MG, THREE TIMES DAILY)
  3. BENZHEXOL /00002601/ (BENZHEXOL) 2 MG [Suspect]
     Indication: PARKINSONISM
     Dosage: (2 MG QD)
  4. AMANTADINE (AMANTADINE) 100 MG [Suspect]
     Indication: PARKINSONISM
     Dosage: (100 MG BID)
  5. ROPINIROLE [Suspect]
     Indication: PARKINSONISM
     Dosage: (0.5 MG TID)

REACTIONS (23)
  - RHABDOMYOLYSIS [None]
  - HAEMODIALYSIS [None]
  - INTERNATIONAL NORMALISED RATIO INCREASED [None]
  - DELIRIUM [None]
  - HYPERHIDROSIS [None]
  - SOMNOLENCE [None]
  - RENAL FAILURE ACUTE [None]
  - SHOCK [None]
  - HYPERTONIA [None]
  - SEPSIS [None]
  - MYDRIASIS [None]
  - ACTIVATED PARTIAL THROMBOPLASTIN TIME PROLONGED [None]
  - SEROTONIN SYNDROME [None]
  - DYSPHAGIA [None]
  - OXYGEN SATURATION DECREASED [None]
  - METABOLIC ACIDOSIS [None]
  - FLUSHING [None]
  - CLONUS [None]
  - PLATELET COUNT DECREASED [None]
  - ENCEPHALOPATHY [None]
  - PNEUMONIA [None]
  - PYREXIA [None]
  - MENTAL STATUS CHANGES [None]
